FAERS Safety Report 6234216-9 (Version None)
Quarter: 2009Q2

REPORT INFORMATION
  Report Type: 
  Country: None (occurrence: None)
  Receive Date: 20090612
  Receipt Date: 20090608
  Transmission Date: 20091009
  Serious: No
  Sender: FDA-Public Use
  Company Number: 20096902

PATIENT
  Sex: Male

DRUGS (4)
  1. BACLOFEN [Suspect]
     Indication: MUSCLE SPASTICITY
     Dosage: 50 MCG, DAILY, INTRATHECAL
     Route: 037
     Dates: start: 20080623
  2. CELTECT [Concomitant]
  3. LOXONIN [Concomitant]
  4. MUCOSTA [Concomitant]

REACTIONS (2)
  - HEADACHE [None]
  - URINARY TRACT INFECTION [None]
